FAERS Safety Report 6042577-9 (Version None)
Quarter: 2009Q1

REPORT INFORMATION
  Report Type: 
  Country: None (occurrence: None)
  Receive Date: 20090119
  Receipt Date: 20090114
  Transmission Date: 20090719
  Serious: No
  Sender: FDA-Public Use
  Company Number: US-JNJFOC-20080303109

PATIENT
  Sex: Female
  Weight: 105.69 kg

DRUGS (4)
  1. DURAGESIC-100 [Suspect]
     Dosage: TWO 100UG PATCHES
     Route: 062
  2. DURAGESIC-100 [Suspect]
     Route: 062
  3. DURAGESIC-100 [Suspect]
     Route: 062
  4. DURAGESIC-100 [Suspect]
     Indication: PAIN
     Route: 062

REACTIONS (6)
  - COUGH [None]
  - DYSPNOEA [None]
  - HYPOAESTHESIA [None]
  - INCORRECT DRUG ADMINISTRATION DURATION [None]
  - MUSCLE SPASMS [None]
  - TREMOR [None]
